FAERS Safety Report 23103847 (Version 4)
Quarter: 2024Q2

REPORT INFORMATION
  Report Type: Spontaneous
  Country: US (occurrence: US)
  Receive Date: 20231025
  Receipt Date: 20240523
  Transmission Date: 20240717
  Serious: No
  Sender: FDA-Public Use
  Company Number: US-SA-SAC20231019000162

PATIENT
  Age: 34 Year
  Sex: Female

DRUGS (5)
  1. CEREZYME [Suspect]
     Active Substance: IMIGLUCERASE
     Indication: Gaucher^s disease
     Dosage: 2000 U, QOW
     Route: 042
     Dates: start: 202112, end: 20231016
  2. CEREZYME [Suspect]
     Active Substance: IMIGLUCERASE
     Dosage: 2000 U, QOW
     Route: 042
     Dates: start: 2023
  3. SODIUM CHLORIDE [Concomitant]
     Active Substance: SODIUM CHLORIDE
     Dosage: UNK
  4. SODIUM CHLORIDE [Concomitant]
     Active Substance: SODIUM CHLORIDE
     Dosage: UNK
  5. STERILE WATER [Concomitant]
     Active Substance: WATER
     Dosage: UNK

REACTIONS (4)
  - Infusion site pain [Unknown]
  - Wrong technique in product usage process [Unknown]
  - Maternal exposure during breast feeding [Unknown]
  - Product storage error [Unknown]

NARRATIVE: CASE EVENT DATE: 20231016
